FAERS Safety Report 8747071 (Version 2)
Quarter: 2012Q4

REPORT INFORMATION
  Report Type: 
  Country: JP (occurrence: JP)
  Receive Date: 20120827
  Receipt Date: 20121221
  Transmission Date: 20130627
  Serious: Yes (Other)
  Sender: FDA-Public Use
  Company Number: JP-009507513-1208JPN004774

PATIENT
  Age: 52 Year
  Sex: Male
  Weight: 77 kg

DRUGS (10)
  1. PEGINTRON [Suspect]
     Indication: CHRONIC HEPATITIS C
     Dosage: 1.5 Microgram per kilogram, qw
     Route: 058
     Dates: start: 20120418, end: 20120424
  2. PEGINTRON [Suspect]
     Dosage: 1.0 Microgram per kilogram, qw
     Route: 058
     Dates: start: 20120501, end: 20120501
  3. PEGINTRON [Suspect]
     Dosage: 0.8 Microgram per kilogram, qw
     Route: 058
     Dates: start: 20120508, end: 20120927
  4. PEGINTRON [Suspect]
     Dosage: UNK
  5. REBETOL [Suspect]
     Indication: CHRONIC HEPATITIS C
     Dosage: 800 mg, qd
     Route: 048
     Dates: start: 20120418, end: 20120927
  6. TELAVIC [Suspect]
     Indication: CHRONIC HEPATITIS C
     Dosage: 1500 mg qd
     Route: 048
     Dates: start: 20120418, end: 20120712
  7. LIVALO [Concomitant]
     Indication: HYPERLIPIDAEMIA
     Dosage: 2 mg, qd,
     Route: 048
  8. EPADEL S [Concomitant]
     Indication: HYPERLIPIDAEMIA
     Dosage: 1800 mg qd
     Route: 048
  9. FEROTYM [Concomitant]
     Indication: IRON DEFICIENCY ANAEMIA
     Dosage: 100 mg, qd,
     Route: 048
  10. CLARITIN [Concomitant]
     Indication: PROPHYLAXIS
     Dosage: 10 mg, qd
     Route: 048

REACTIONS (1)
  - Anaemia [Not Recovered/Not Resolved]
